FAERS Safety Report 5509521-1 (Version None)
Quarter: 2007Q4

REPORT INFORMATION
  Report Type: 
  Country: None (occurrence: None)
  Receive Date: 20071107
  Receipt Date: 20071026
  Transmission Date: 20080405
  Serious: Yes (Hospitalization, Other)
  Sender: FDA-Public Use
  Company Number: JP-PFIZER INC-2007091210

PATIENT
  Age: 79 Year
  Sex: Male

DRUGS (8)
  1. NORVASC [Suspect]
     Route: 048
  2. URIEF [Concomitant]
     Route: 048
  3. ASPIRIN [Concomitant]
     Route: 048
  4. ENALAPRIL MALEATE [Concomitant]
     Route: 048
  5. EVAMYL [Concomitant]
     Route: 048
  6. DEPAS [Concomitant]
     Route: 048
  7. ZOLPIDEM [Concomitant]
     Route: 048
  8. AMOBAN [Concomitant]
     Route: 048

REACTIONS (1)
  - INTERSTITIAL LUNG DISEASE [None]
